FAERS Safety Report 13239944 (Version 6)
Quarter: 2019Q1

REPORT INFORMATION
  Report Type: Spontaneous
  Country: US (occurrence: US)
  Receive Date: 20170216
  Receipt Date: 20190314
  Transmission Date: 20190417
  Serious: No
  Sender: FDA-Public Use
  Company Number: US-PFIZER INC-2017067913

PATIENT
  Age: 78 Year
  Sex: Female
  Weight: 76.64 kg

DRUGS (5)
  1. LYRICA [Suspect]
     Active Substance: PREGABALIN
     Dosage: UNK
  2. GABAPENTIN. [Concomitant]
     Active Substance: GABAPENTIN
     Dosage: 600 MG, 3X/DAY [600MG TAKEN BY MOUTH THREE TIMES DAILY]
     Route: 048
  3. LYRICA [Suspect]
     Active Substance: PREGABALIN
     Indication: DIABETIC NEUROPATHY
     Dosage: 1 CAPSULE DAILY/ONE OR 2 A DAY
     Route: 048
     Dates: start: 201811
  4. LYRICA [Suspect]
     Active Substance: PREGABALIN
     Dosage: 1 DF, DAILY
     Route: 048
     Dates: start: 201901
  5. LYRICA [Suspect]
     Active Substance: PREGABALIN
     Indication: ESSENTIAL HYPERTENSION
     Dosage: 600 MG, DAILY (2 CAPSULE BY MOUTH IN THE AM AND 1 IN THE PM)
     Route: 048

REACTIONS (10)
  - Muscle spasms [Unknown]
  - Cystitis [Not Recovered/Not Resolved]
  - Insomnia [Not Recovered/Not Resolved]
  - Product prescribing error [Unknown]
  - Hypertension [Not Recovered/Not Resolved]
  - Memory impairment [Unknown]
  - Intentional product use issue [Unknown]
  - Renal disorder [Unknown]
  - Malaise [Not Recovered/Not Resolved]
  - Nervousness [Unknown]

NARRATIVE: CASE EVENT DATE: 2018
